FAERS Safety Report 6742779-X (Version None)
Quarter: 2010Q2

REPORT INFORMATION
  Report Type: 
  Country: None (occurrence: None)
  Receive Date: 20100525
  Receipt Date: 20100519
  Transmission Date: 20101027
  Serious: Yes (Death)
  Sender: FDA-Public Use
  Company Number: 2010US001366

PATIENT
  Age: 65 Year
  Sex: Female

DRUGS (2)
  1. PROGRAF [Suspect]
     Indication: LUNG TRANSPLANT
     Dosage: 0.5 MG, UID/QD
     Dates: end: 20100420
  2. PREDNISONE TAB [Concomitant]

REACTIONS (2)
  - LUNG TRANSPLANT REJECTION [None]
  - RESPIRATORY FAILURE [None]
